APPROVED DRUG PRODUCT: TRIAZOLAM
Active Ingredient: TRIAZOLAM
Strength: 0.125MG
Dosage Form/Route: TABLET;ORAL
Application: A216890 | Product #001 | TE Code: AB
Applicant: BRECKENRIDGE PHARMACEUTICAL INC
Approved: Nov 8, 2022 | RLD: No | RS: No | Type: RX